FAERS Safety Report 16084608 (Version 1)
Quarter: 2019Q1

REPORT INFORMATION
  Report Type: Spontaneous
  Country: JP (occurrence: JP)
  Receive Date: 20190318
  Receipt Date: 20190318
  Transmission Date: 20190418
  Serious: Yes (Hospitalization)
  Sender: FDA-Public Use
  Company Number: JP-ACTELION-A-CH2019-187398

PATIENT
  Age: 31 Year
  Sex: Female

DRUGS (1)
  1. EPOPROSTENOL SODIUM. [Suspect]
     Active Substance: EPOPROSTENOL SODIUM
     Indication: PULMONARY ARTERIAL HYPERTENSION
     Route: 042

REACTIONS (8)
  - Catheter site swelling [Unknown]
  - Device adhesion issue [Unknown]
  - Device related infection [Unknown]
  - Catheter site erythema [Unknown]
  - Catheter removal [Unknown]
  - Device occlusion [Unknown]
  - Catheter management [Unknown]
  - Staphylococcal infection [Unknown]
